FAERS Safety Report 23171175 (Version 1)
Quarter: 2023Q4

REPORT INFORMATION
  Report Type: Spontaneous
  Country: RU (occurrence: None)
  Receive Date: 20231110
  Receipt Date: 20231110
  Transmission Date: 20240110
  Serious: Yes (Other)
  Sender: FDA-Public Use
  Company Number: 2023A252627

PATIENT
  Sex: Female

DRUGS (1)
  1. OSIMERTINIB [Suspect]
     Active Substance: OSIMERTINIB
     Indication: Non-small cell lung cancer
     Route: 048

REACTIONS (2)
  - Nephrolithiasis [Not Recovered/Not Resolved]
  - Blood creatinine increased [Unknown]
